FAERS Safety Report 6009317-0 (Version None)
Quarter: 2008Q4

REPORT INFORMATION
  Report Type: 
  Country: None (occurrence: None)
  Receive Date: 20081217
  Receipt Date: 20080922
  Transmission Date: 20090506
  Serious: No
  Sender: FDA-Public Use
  Company Number: US-BAYER-200810725NA

PATIENT
  Age: 34 Year
  Sex: Female
  Weight: 54 kg

DRUGS (1)
  1. YAZ [Suspect]
     Indication: CONTRACEPTION
     Route: 048
     Dates: start: 20071101

REACTIONS (5)
  - HYPOAESTHESIA [None]
  - PARAESTHESIA [None]
  - VAGINAL HAEMORRHAGE [None]
  - WEIGHT FLUCTUATION [None]
  - WEIGHT INCREASED [None]
